FAERS Safety Report 4914515-0 (Version None)
Quarter: 2006Q1

REPORT INFORMATION
  Report Type: 
  Country: None (occurrence: None)
  Receive Date: 20060216
  Receipt Date: 20051109
  Transmission Date: 20060701
  Serious: Yes (Hospitalization)
  Sender: FDA-Public Use
  Company Number: US-MERCK-0511USA01667

PATIENT
  Sex: Male
  Weight: 68 kg

DRUGS (5)
  1. VIOXX [Suspect]
     Indication: BONE PAIN
     Route: 048
     Dates: start: 19970101, end: 19970101
  2. VIOXX [Suspect]
     Indication: ARTHRALGIA
     Route: 048
     Dates: start: 19970101, end: 19970101
  3. NEXIUM [Concomitant]
     Route: 065
  4. FLOMAX (MORNIFLUMATE) [Concomitant]
     Route: 065
  5. ASPIRIN [Concomitant]
     Route: 065

REACTIONS (2)
  - CEREBROVASCULAR ACCIDENT [None]
  - INJURY [None]
